FAERS Safety Report 5274257-1 (Version None)
Quarter: 2007Q1

REPORT INFORMATION
  Report Type: 
  Country: None (occurrence: None)
  Receive Date: 20070323
  Receipt Date: 20070312
  Transmission Date: 20070707
  Serious: Yes (Hospitalization)
  Sender: FDA-Public Use
  Company Number: JP-JNJFOC-20070301488

PATIENT
  Sex: Female
  Weight: 45 kg

DRUGS (27)
  1. REMICADE [Suspect]
     Route: 042
  2. REMICADE [Suspect]
     Route: 042
  3. REMICADE [Suspect]
     Route: 042
  4. REMICADE [Suspect]
     Route: 042
  5. REMICADE [Suspect]
     Route: 042
  6. REMICADE [Suspect]
     Route: 042
  7. REMICADE [Suspect]
     Route: 042
  8. REMICADE [Suspect]
     Route: 042
  9. REMICADE [Suspect]
     Route: 042
  10. REMICADE [Suspect]
     Route: 042
  11. REMICADE [Suspect]
     Route: 042
  12. REMICADE [Suspect]
     Route: 042
  13. REMICADE [Suspect]
     Indication: CROHN'S DISEASE
     Route: 042
  14. PREDONINE [Suspect]
     Indication: CROHN'S DISEASE
     Route: 048
  15. PREDNISOLONE [Suspect]
     Indication: CROHN'S DISEASE
  16. IMURAN [Concomitant]
     Indication: CROHN'S DISEASE
     Route: 048
  17. ENSURE [Concomitant]
     Indication: CROHN'S DISEASE
     Route: 048
  18. GASTER D [Concomitant]
     Route: 048
  19. RIZE [Concomitant]
     Route: 048
  20. MYSLEE [Concomitant]
     Route: 048
  21. CALCIUM LACTATE [Concomitant]
     Route: 048
  22. ONEALFA [Concomitant]
     Route: 048
  23. NEUROVITAN [Concomitant]
     Route: 048
  24. SELBEX [Concomitant]
     Route: 048
  25. DEPAS [Concomitant]
     Route: 048
  26. ASPIRIN [Concomitant]
     Indication: VASCULITIS
     Route: 048
  27. ONEALFA [Concomitant]
     Dosage: DOSE:  0.5 RG

REACTIONS (1)
  - APPENDICITIS [None]
